FAERS Safety Report 4274090-3 (Version None)
Quarter: 2004Q1

REPORT INFORMATION
  Report Type: 
  Country: None (occurrence: None)
  Receive Date: 20040120
  Receipt Date: 20040119
  Transmission Date: 20041129
  Serious: Yes (Hospitalization)
  Sender: FDA-Public Use
  Company Number: FR-GLAXOSMITHKLINE-A0493819A

PATIENT
  Age: 41 Year
  Sex: Male

DRUGS (7)
  1. NAVELBINE [Suspect]
     Indication: BRONCHIAL CARCINOMA
     Dosage: 10MGM2 PER DAY
     Route: 042
     Dates: start: 20030318, end: 20030415
  2. CISPLATIN [Suspect]
     Indication: BRONCHIAL CARCINOMA
     Route: 042
     Dates: start: 20030319, end: 20030416
  3. SOLU-MEDROL [Suspect]
     Indication: BRONCHIAL CARCINOMA
     Dosage: 60MGML PER DAY
     Route: 042
     Dates: start: 20030318, end: 20030417
  4. HOLOXAN [Suspect]
     Indication: BRONCHIAL CARCINOMA
     Dosage: 500MG PER DAY
     Route: 042
     Dates: start: 20030318, end: 20030417
  5. RADIATION THERAPY [Suspect]
     Indication: BRONCHIAL CARCINOMA
     Route: 065
     Dates: end: 20030701
  6. MESNA [Concomitant]
     Dates: start: 20030318, end: 20030417
  7. PLITICAN [Concomitant]
     Dates: start: 20030326, end: 20030326

REACTIONS (1)
  - LUNG DISORDER [None]
